FAERS Safety Report 7584886-8 (Version None)
Quarter: 2011Q2

REPORT INFORMATION
  Report Type: 
  Country: None (occurrence: None)
  Receive Date: 20110630
  Receipt Date: 20110615
  Transmission Date: 20111010
  Serious: Yes (Life-Threatening)
  Sender: FDA-Public Use
  Company Number: US-ASTRAZENECA-2011SE36611

PATIENT
  Sex: Female

DRUGS (3)
  1. ARIMIDEX [Suspect]
     Route: 048
     Dates: start: 20100701
  2. TOPROL-XL [Suspect]
     Route: 048
  3. TAXOL [Suspect]
     Route: 065

REACTIONS (2)
  - APPARENT DEATH [None]
  - HYPERSENSITIVITY [None]
